FAERS Safety Report 14879995 (Version 2)
Quarter: 2018Q2

REPORT INFORMATION
  Report Type: Spontaneous
  Country: JP (occurrence: JP)
  Receive Date: 20180511
  Receipt Date: 20180527
  Transmission Date: 20180711
  Serious: Yes (Other)
  Sender: FDA-Public Use
  Company Number: PHJP2018JP010312

PATIENT
  Age: 88 Year
  Sex: Female

DRUGS (3)
  1. EXELON PATCH [Suspect]
     Active Substance: RIVASTIGMINE
     Indication: DEMENTIA ALZHEIMER^S TYPE
     Dosage: 9.5 MG, QD (PATCH 10 CM2)
     Route: 062
     Dates: start: 201307, end: 20180508
  2. AMLODIN [Concomitant]
     Active Substance: AMLODIPINE BESYLATE
     Indication: PRODUCT USED FOR UNKNOWN INDICATION
     Dosage: UNK
     Route: 065
  3. ARIMIDEX [Concomitant]
     Active Substance: ANASTROZOLE
     Indication: PRODUCT USED FOR UNKNOWN INDICATION
     Dosage: UNK
     Route: 065

REACTIONS (5)
  - Urinary incontinence [Recovered/Resolved]
  - Parkinson^s disease [Unknown]
  - Nasopharyngitis [Recovered/Resolved]
  - Decreased appetite [Recovered/Resolved]
  - Freezing phenomenon [Recovered/Resolved]

NARRATIVE: CASE EVENT DATE: 20180507
